FAERS Safety Report 23504998 (Version 1)
Quarter: 2024Q1

REPORT INFORMATION
  Report Type: Spontaneous
  Country: GB (occurrence: GB)
  Receive Date: 20240209
  Receipt Date: 20240209
  Transmission Date: 20240410
  Serious: No
  Sender: FDA-Public Use
  Company Number: None

PATIENT
  Age: 86 Year
  Sex: Female
  Weight: 75 kg

DRUGS (6)
  1. GABAPENTIN [Suspect]
     Active Substance: GABAPENTIN
     Indication: Ill-defined disorder
     Dosage: UNK(TAKE ONE ON DAY ONE, ONE TWICE DAILY DAY TWO. CAPSULE)
     Route: 065
     Dates: start: 20230915
  2. CLARITHROMYCIN [Concomitant]
     Active Substance: CLARITHROMYCIN
     Indication: Product used for unknown indication
     Dosage: UNK, BID (TAKE ONE EVERY 12 HRS)
     Route: 065
     Dates: start: 20230915, end: 20230922
  3. DIHYDROCODEINE [Concomitant]
     Active Substance: DIHYDROCODEINE
     Indication: Product used for unknown indication
     Dosage: UNK (TAKE ONE OR 2 UPTO 3 TIMES A DAY)
     Route: 065
     Dates: start: 20230123
  4. LANSOPRAZOLE [Concomitant]
     Active Substance: LANSOPRAZOLE
     Indication: Product used for unknown indication
     Dosage: UNK, OD (TAKE ONE ONCE DAILY)
     Route: 065
     Dates: start: 20230123
  5. POLYETHYLENE GLYCOL 3350\POTASSIUM CHLORIDE\SODIUM BICARBONATE\SODIUM [Concomitant]
     Active Substance: POLYETHYLENE GLYCOL 3350\POTASSIUM CHLORIDE\SODIUM BICARBONATE\SODIUM CHLORIDE
     Indication: Product used for unknown indication
     Dosage: UNK, QD (1-4 PER DAY)
     Route: 065
     Dates: start: 20230123
  6. Uvistat-L [Concomitant]
     Indication: Product used for unknown indication
     Dosage: UNK OD (AAPLY ONCE DAILY)
     Route: 065
     Dates: start: 20230721, end: 20231129

REACTIONS (3)
  - Illness [Unknown]
  - Fall [Unknown]
  - Diarrhoea [Unknown]

NARRATIVE: CASE EVENT DATE: 20231129
